FAERS Safety Report 7001313-X (Version None)
Quarter: 2010Q3

REPORT INFORMATION
  Report Type: 
  Country: None (occurrence: None)
  Receive Date: 20100920
  Receipt Date: 20100524
  Transmission Date: 20110219
  Serious: No
  Sender: FDA-Public Use
  Company Number: US-ASTRAZENECA-2010SE23805

PATIENT
  Sex: Female
  Weight: 79.4 kg

DRUGS (2)
  1. SEROQUEL [Suspect]
     Indication: INJURY
     Route: 048
  2. SEROQUEL [Suspect]
     Route: 048

REACTIONS (5)
  - APATHY [None]
  - CONFUSIONAL STATE [None]
  - INCORRECT DOSE ADMINISTERED [None]
  - INSOMNIA [None]
  - WEIGHT INCREASED [None]
